FAERS Safety Report 8418782-0 (Version None)
Quarter: 2012Q2

REPORT INFORMATION
  Report Type: 
  Country: None (occurrence: None)
  Receive Date: 20120607
  Receipt Date: 20120525
  Transmission Date: 20120825
  Serious: Yes (Death)
  Sender: FDA-Public Use
  Company Number: CA-ROCHE-1072504

PATIENT

DRUGS (8)
  1. CYCLOPHOSPHAMIDE [Suspect]
     Indication: NON-HODGKIN'S LYMPHOMA UNSPECIFIED HISTOLOGY AGGRESSIVE
     Dosage: UNKNOWN
  2. MABTHERA [Suspect]
     Indication: NON-HODGKIN'S LYMPHOMA UNSPECIFIED HISTOLOGY AGGRESSIVE
     Dosage: UNKNOWN
  3. ETOPOSIDE [Suspect]
     Indication: NON-HODGKIN'S LYMPHOMA UNSPECIFIED HISTOLOGY AGGRESSIVE
     Dosage: UNKNOWN
  4. MABTHERA [Suspect]
     Dates: start: 20060101
  5. CISPLATIN [Suspect]
     Indication: NON-HODGKIN'S LYMPHOMA UNSPECIFIED HISTOLOGY AGGRESSIVE
     Dosage: UNKNOWN
  6. CISPLATIN [Suspect]
     Dates: start: 19950101
  7. CYCLOPHOSPHAMIDE [Suspect]
     Dosage: 5.25G/M2
     Dates: start: 19950101
  8. ETOPOSIDE [Suspect]
     Dosage: 1.05G/M2
     Dates: start: 19950101

REACTIONS (1)
  - DEATH [None]
